FAERS Safety Report 15163265 (Version 1)
Quarter: 2018Q3

REPORT INFORMATION
  Report Type: Spontaneous
  Country: US (occurrence: US)
  Receive Date: 20180718
  Receipt Date: 20180718
  Transmission Date: 20181010
  Serious: No
  Sender: FDA-Public Use
  Company Number: US-SHIRE-US201826020

PATIENT
  Sex: Female

DRUGS (2)
  1. VYVANSE [Suspect]
     Active Substance: LISDEXAMFETAMINE DIMESYLATE
     Indication: BINGE EATING
     Dosage: 30 MG, 1X A MONTH
     Route: 065
     Dates: start: 20180410
  2. VYVANSE [Suspect]
     Active Substance: LISDEXAMFETAMINE DIMESYLATE
     Dosage: 15 MG, UNK
     Route: 065

REACTIONS (6)
  - Fatigue [Unknown]
  - Muscle twitching [Unknown]
  - Heart rate increased [Unknown]
  - Tremor [Unknown]
  - Vision blurred [Unknown]
  - Dizziness [Unknown]
